FAERS Safety Report 6999708-3 (Version None)
Quarter: 2010Q3

REPORT INFORMATION
  Report Type: 
  Country: None (occurrence: None)
  Receive Date: 20100920
  Receipt Date: 20100204
  Transmission Date: 20110219
  Serious: No
  Sender: FDA-Public Use
  Company Number: US-ASTRAZENECA-2009SE17840

PATIENT
  Age: 48 Year
  Sex: Male
  Weight: 93.4 kg

DRUGS (4)
  1. SEROQUEL [Suspect]
     Indication: SCHIZOPHRENIA, PARANOID TYPE
     Route: 048
     Dates: start: 20030101, end: 20080101
  2. HALDOL [Concomitant]
     Dates: start: 19820101
  3. NAVANE [Concomitant]
     Dates: start: 19840101
  4. STELAZINE [Concomitant]
     Dates: start: 19760101

REACTIONS (3)
  - DIABETES MELLITUS [None]
  - OBESITY [None]
  - TYPE 2 DIABETES MELLITUS [None]
